FAERS Safety Report 5738073-6 (Version None)
Quarter: 2008Q2

REPORT INFORMATION
  Report Type: 
  Country: None (occurrence: None)
  Receive Date: 20080514
  Receipt Date: 20080509
  Transmission Date: 20081010
  Serious: Yes (Hospitalization, Other)
  Sender: FDA-Public Use
  Company Number: US-ELI_LILLY_AND_COMPANY-US200805002095

PATIENT
  Sex: Female
  Weight: 58.957 kg

DRUGS (2)
  1. HUMALOG MIX 75/25 [Suspect]
     Dosage: UNK, UNK
     Dates: start: 20030101
  2. SENSIPAR [Concomitant]
     Indication: RENAL FAILURE CHRONIC

REACTIONS (6)
  - BLOOD PHOSPHORUS ABNORMAL [None]
  - BLOOD POTASSIUM INCREASED [None]
  - BLOOD TEST ABNORMAL [None]
  - FATIGUE [None]
  - HOSPITALISATION [None]
  - RENAL FAILURE CHRONIC [None]
